FAERS Safety Report 7482068-1 (Version None)
Quarter: 2011Q2

REPORT INFORMATION
  Report Type: 
  Country: None (occurrence: None)
  Receive Date: 20110516
  Receipt Date: 20110510
  Transmission Date: 20111010
  Serious: Yes (Death, Life-Threatening, Hospitalization)
  Sender: FDA-Public Use
  Company Number: GXKR2011DE01672

PATIENT
  Age: 83 Year
  Sex: Male

DRUGS (9)
  1. FERRO ^SANOL^ [Concomitant]
     Dosage: 100 MG/DAY
     Route: 048
     Dates: start: 20051215, end: 20060102
  2. PEROCUR FORTE [Concomitant]
     Dosage: 2 DF/DAY
     Route: 048
     Dates: start: 20051227, end: 20060102
  3. FUROSEMIDE [Suspect]
     Dosage: 40 MG/DAY
     Route: 048
     Dates: end: 20060102
  4. NEXIUM [Concomitant]
     Dosage: 40 MG/DAY
     Route: 048
     Dates: end: 20060102
  5. KALIENOR [Concomitant]
     Dosage: UNK UKN, UNK
     Route: 048
     Dates: start: 20051214, end: 20060102
  6. LISINOPRIL [Concomitant]
     Dosage: 10 MG/DAY
     Route: 048
     Dates: end: 20060102
  7. NOVALGIN                                /SCH/ [Concomitant]
     Dosage: 80 GTT/DAY
     Route: 048
     Dates: start: 20051228, end: 20060102
  8. GLIANIMON [Concomitant]
     Dosage: 3 MG/DAY
     Route: 048
     Dates: start: 20041001, end: 20060102
  9. THEOPHYLLINE [Concomitant]
     Dosage: 375 MG/DAY
     Route: 048
     Dates: end: 20060102

REACTIONS (3)
  - DYSPNOEA [None]
  - DEATH [None]
  - PULMONARY EMBOLISM [None]
